FAERS Safety Report 21882554 (Version 1)
Quarter: 2023Q1

REPORT INFORMATION
  Report Type: Report from Study
  Country: US (occurrence: US)
  Receive Date: 20230119
  Receipt Date: 20230119
  Transmission Date: 20230417
  Serious: No
  Sender: FDA-Public Use
  Company Number: US-Accord-273660

PATIENT
  Sex: Male
  Weight: 129.27 kg

DRUGS (1)
  1. CLOZAPINE [Suspect]
     Active Substance: CLOZAPINE
     Indication: Schizophrenia
     Dosage: 75MG, EVERY MORNING, 25MG, EVERY EARLY AFTERNOON, 150MG, EVERY NIGHT AT BEDTIME
     Route: 048

REACTIONS (1)
  - Intercepted product prescribing error [Unknown]
